FAERS Safety Report 24311329 (Version 6)
Quarter: 2025Q1

REPORT INFORMATION
  Report Type: Report from Study
  Country: US (occurrence: US)
  Receive Date: 20240912
  Receipt Date: 20250214
  Transmission Date: 20250409
  Serious: Yes (Other)
  Sender: PAREXEL
  Company Number: US-Stemline Therapeutics, Inc.-2024ST003221

PATIENT

DRUGS (9)
  1. ORSERDU [Suspect]
     Active Substance: ELACESTRANT
     Indication: Breast cancer female
     Dosage: 86 MG, TID
     Route: 048
     Dates: start: 20240515
  2. ORSERDU [Suspect]
     Active Substance: ELACESTRANT
     Dosage: 86 MG, TID
     Route: 048
     Dates: start: 20240516
  3. ORSERDU [Suspect]
     Active Substance: ELACESTRANT
     Dosage: 258 MG, ONCE DAILY
     Route: 048
  4. ORSERDU [Suspect]
     Active Substance: ELACESTRANT
     Dosage: 258 MG, DAILY
     Route: 048
  5. IBUPROFEN [Suspect]
     Active Substance: IBUPROFEN
     Indication: Wrist fracture
     Route: 065
  6. ELIQUIS [Concomitant]
     Active Substance: APIXABAN
     Indication: Product used for unknown indication
     Dosage: 2.5 MG, BID
  7. ELIQUIS [Concomitant]
     Active Substance: APIXABAN
     Dosage: 5 MG, BID
  8. ATENOLOL [Concomitant]
     Active Substance: ATENOLOL
     Indication: Product used for unknown indication
  9. AMLODIPINE [Concomitant]
     Active Substance: AMLODIPINE BESYLATE
     Indication: Product used for unknown indication

REACTIONS (22)
  - Blood potassium decreased [Unknown]
  - Blindness transient [Unknown]
  - Melaena [Recovered/Resolved]
  - Gait inability [Unknown]
  - Feeling abnormal [Unknown]
  - Fall [Unknown]
  - Wrist fracture [Recovering/Resolving]
  - Head discomfort [Unknown]
  - Peripheral swelling [Not Recovered/Not Resolved]
  - Blood pressure abnormal [Unknown]
  - Heart rate decreased [Unknown]
  - Joint swelling [Not Recovered/Not Resolved]
  - Asthenia [Unknown]
  - Pain in extremity [Unknown]
  - Dizziness [Recovering/Resolving]
  - Fatigue [Not Recovered/Not Resolved]
  - Nausea [Unknown]
  - Headache [Unknown]
  - Back pain [Unknown]
  - Underdose [Unknown]
  - Influenza [Unknown]
  - Urinary tract infection [Unknown]

NARRATIVE: CASE EVENT DATE: 20250131
